FAERS Safety Report 20206257 (Version 1)
Quarter: 2021Q4

REPORT INFORMATION
  Report Type: Spontaneous
  Country: IT (occurrence: IT)
  Receive Date: 20211220
  Receipt Date: 20211220
  Transmission Date: 20220303
  Serious: Yes (Death, Other)
  Sender: FDA-Public Use
  Company Number: IT-ROCHE-2925944

PATIENT
  Age: 72 Year
  Sex: Male

DRUGS (40)
  1. METHOTREXATE [Suspect]
     Active Substance: METHOTREXATE
     Indication: Primary cardiac lymphoma
     Dosage: UNK, (SINGLE COURSE OF DOSE ADAPTED MATRIX CHEMOTHERAPY)
     Route: 065
  2. METHOTREXATE [Suspect]
     Active Substance: METHOTREXATE
     Indication: Chemotherapy
     Dosage: UNK
  3. PREDNISONE [Suspect]
     Active Substance: PREDNISONE
     Indication: Primary cardiac lymphoma
     Dosage: UNK, Q21D, (R-COMP SCHEME FOR SIX COURSES, EVERY 21 DAYS)
  4. PREDNISONE [Suspect]
     Active Substance: PREDNISONE
     Indication: Diffuse large B-cell lymphoma
     Dosage: UNK, (R-COMP SCHEME FOR SIX COURSES, EVERY 21 DAYS)
  5. PREDNISONE [Suspect]
     Active Substance: PREDNISONE
     Dosage: UNK, (R-COMP SCHEME FOR SIX COURSES, EVERY 21 DAYS)
  6. PREDNISONE [Suspect]
     Active Substance: PREDNISONE
     Dosage: UNK, (R-COMP SCHEME FOR SIX COURSES, EVERY 21 DAYS)
  7. PREDNISONE [Suspect]
     Active Substance: PREDNISONE
     Dosage: UNK, (R-COMP SCHEME FOR SIX COURSES, EVERY 21 DAYS)
  8. PREDNISONE [Suspect]
     Active Substance: PREDNISONE
     Dosage: UNK, (R-COMP SCHEME FOR SIX COURSES, EVERY 21 DAYS)
  9. RITUXIMAB [Suspect]
     Active Substance: RITUXIMAB
     Indication: Primary cardiac lymphoma
     Dosage: UNK, Q21D, (~R-COMP SCHEME FOR SIX COURSES, EVERY 21 DAYS )
  10. RITUXIMAB [Suspect]
     Active Substance: RITUXIMAB
     Indication: Chemotherapy
     Dosage: UNK, (R-COMP SCHEME FOR SIX COURSES, EVERY 21 DAYS)
  11. RITUXIMAB [Suspect]
     Active Substance: RITUXIMAB
     Indication: Diffuse large B-cell lymphoma
     Dosage: UNK, (TWO ADMINISTRATIONS ALONE (SEVENTH)  )
  12. RITUXIMAB [Suspect]
     Active Substance: RITUXIMAB
     Dosage: UNK, (R-COMP SCHEME FOR SIX COURSES, EVERY 21 DAYS)
  13. RITUXIMAB [Suspect]
     Active Substance: RITUXIMAB
     Dosage: UNK, (R-COMP SCHEME FOR SIX COURSES, EVERY 21 DAYS)
  14. RITUXIMAB [Suspect]
     Active Substance: RITUXIMAB
     Dosage: UNK, (SINGLE COURSE OF DOSE ADAPTED MATRIX CHEMOTHERAPY)
  15. RITUXIMAB [Suspect]
     Active Substance: RITUXIMAB
     Dosage: UNK, (R-COMP SCHEME FOR SIX COURSES, EVERY 21 DAYS)
  16. RITUXIMAB [Suspect]
     Active Substance: RITUXIMAB
     Dosage: UNK, (R-COMP SCHEME FOR SIX COURSES, EVERY 21 DAYS)
  17. CYTARABINE [Suspect]
     Active Substance: CYTARABINE
     Indication: Primary cardiac lymphoma
     Dosage: UNK, (SINGLE COURSE OF DOSE ADAPTED MATRIX CHEMOTHERAPY)
     Route: 065
  18. CYTARABINE [Suspect]
     Active Substance: CYTARABINE
     Indication: Chemotherapy
     Dosage: UNK
  19. THIOTEPA [Suspect]
     Active Substance: THIOTEPA
     Indication: Primary cardiac lymphoma
     Dosage: UNK
     Route: 065
  20. THIOTEPA [Suspect]
     Active Substance: THIOTEPA
     Indication: Chemotherapy
     Dosage: UNK, (SINGLE COURSE OF DOSE ADAPTED MATRIX CHEMOTHERAPY)
     Route: 065
  21. THIOTEPA [Suspect]
     Active Substance: THIOTEPA
     Indication: Diffuse large B-cell lymphoma
  22. DOXORUBICIN HYDROCHLORIDE [Suspect]
     Active Substance: DOXORUBICIN HYDROCHLORIDE
     Indication: Primary cardiac lymphoma
     Dosage: UNK UNK, Q21D
  23. DOXORUBICIN HYDROCHLORIDE [Suspect]
     Active Substance: DOXORUBICIN HYDROCHLORIDE
     Indication: Diffuse large B-cell lymphoma
     Dosage: UNK ,(R-COMP SCHEME FOR SIX COURSES, EVERY 21 DAYS)
  24. DOXORUBICIN HYDROCHLORIDE [Suspect]
     Active Substance: DOXORUBICIN HYDROCHLORIDE
     Dosage: UNK, (R-COMP SCHEME FOR SIX COURSES, EVERY 21 DAYS)
  25. DOXORUBICIN HYDROCHLORIDE [Suspect]
     Active Substance: DOXORUBICIN HYDROCHLORIDE
     Dosage: UNK, (R-COMP SCHEME FOR SIX COURSES, EVERY 21 DAYS)
  26. DOXORUBICIN HYDROCHLORIDE [Suspect]
     Active Substance: DOXORUBICIN HYDROCHLORIDE
     Dosage: UNK, (R-COMP SCHEME FOR SIX COURSES, EVERY 21 DAYS)
  27. DOXORUBICIN HYDROCHLORIDE [Suspect]
     Active Substance: DOXORUBICIN HYDROCHLORIDE
     Dosage: UNK, (R-COMP SCHEME FOR SIX COURSES, EVERY 21 DAYS)
  28. DOXORUBICIN HYDROCHLORIDE [Suspect]
     Active Substance: DOXORUBICIN HYDROCHLORIDE
     Dosage: UNK, (R-COMP SCHEME FOR SIX COURSES, EVERY 21 DAYS)
  29. VINCRISTINE [Suspect]
     Active Substance: VINCRISTINE
     Indication: Primary cardiac lymphoma
     Dosage: UNK, Q21D, (R-COMP SCHEME FOR SIX COURSES, EVERY 21 DAYS)
  30. VINCRISTINE [Suspect]
     Active Substance: VINCRISTINE
     Indication: Diffuse large B-cell lymphoma
     Dosage: UNK, (R-COMP SCHEME FOR SIX COURSES, EVERY 21 DAYS)
  31. VINCRISTINE [Suspect]
     Active Substance: VINCRISTINE
     Dosage: UNK, (R-COMP SCHEME FOR SIX COURSES, EVERY 21 DAYS)
  32. VINCRISTINE [Suspect]
     Active Substance: VINCRISTINE
     Dosage: UNK, (R-COMP SCHEME FOR SIX COURSES, EVERY 21 DAYS)
  33. VINCRISTINE [Suspect]
     Active Substance: VINCRISTINE
     Dosage: UNK, (R-COMP SCHEME FOR SIX COURSES, EVERY 21 DAYS)
  34. VINCRISTINE [Suspect]
     Active Substance: VINCRISTINE
     Dosage: UNK, (R-COMP SCHEME FOR SIX COURSES, EVERY 21 DAYS)
  35. CYCLOPHOSPHAMIDE [Suspect]
     Active Substance: CYCLOPHOSPHAMIDE
     Indication: Primary cardiac lymphoma
     Dosage: UNK, Q21D, (R-COMP SCHEME FOR SIX COURSES, EVERY 21 DAYS)
  36. CYCLOPHOSPHAMIDE [Suspect]
     Active Substance: CYCLOPHOSPHAMIDE
     Dosage: UNK, Q21D, (R-COMP SCHEME FOR SIX COURSES, EVERY 21 DAYS)
  37. CYCLOPHOSPHAMIDE [Suspect]
     Active Substance: CYCLOPHOSPHAMIDE
     Dosage: UNK, (R-COMP SCHEME FOR SIX COURSES, EVERY 21 DAYS)
  38. CYCLOPHOSPHAMIDE [Suspect]
     Active Substance: CYCLOPHOSPHAMIDE
     Dosage: UNK, (R-COMP SCHEME FOR SIX COURSES, EVERY 21 DAYS)
  39. CYCLOPHOSPHAMIDE [Suspect]
     Active Substance: CYCLOPHOSPHAMIDE
     Dosage: UNK, (R-COMP SCHEME FOR SIX COURSES, EVERY 21 DAYS)
  40. CYCLOPHOSPHAMIDE [Suspect]
     Active Substance: CYCLOPHOSPHAMIDE
     Dosage: UNK, (R-COMP SCHEME FOR SIX COURSES, EVERY 21 DAYS)

REACTIONS (5)
  - Acute kidney injury [Fatal]
  - Neoplasm recurrence [Fatal]
  - Central nervous system lymphoma [Fatal]
  - Drug intolerance [Fatal]
  - Disease progression [Fatal]
